FAERS Safety Report 4503801-4 (Version None)
Quarter: 2004Q4

REPORT INFORMATION
  Report Type: 
  Country: None (occurrence: None)
  Receive Date: 20041115
  Receipt Date: 20041109
  Transmission Date: 20050328
  Serious: Yes (Hospitalization)
  Sender: FDA-Public Use
  Company Number: 04-11-1562

PATIENT
  Age: 37 Year
  Sex: Female

DRUGS (3)
  1. TRAMADOL HCL [Suspect]
     Indication: HEADACHE
     Dosage: SR 2000MG ORAL
     Route: 048
  2. TRAMADOL HCL [Suspect]
     Indication: PAIN
     Dosage: SR 2000MG ORAL
     Route: 048
  3. NITRAZEPAM FOR CHRONIC PAIN, HEADACHES [Concomitant]

REACTIONS (27)
  - ACTIVITIES OF DAILY LIVING IMPAIRED [None]
  - ASTHENIA [None]
  - ATRIOVENTRICULAR BLOCK FIRST DEGREE [None]
  - BLOOD GASES ABNORMAL [None]
  - BLOOD PH DECREASED [None]
  - CARDIOMEGALY [None]
  - CONGENITAL VENTRICULAR SEPTAL DEFECT [None]
  - CYANOSIS [None]
  - DYSARTHRIA [None]
  - ELECTROCARDIOGRAM ST SEGMENT ELEVATION [None]
  - ELECTROCARDIOGRAM T WAVE INVERSION [None]
  - HAEMODIALYSIS [None]
  - HYPOTENSION [None]
  - LIVER PALPABLE SUBCOSTAL [None]
  - LIVER TENDERNESS [None]
  - MUSCULAR WEAKNESS [None]
  - MYDRIASIS [None]
  - OVERDOSE [None]
  - PCO2 INCREASED [None]
  - PO2 INCREASED [None]
  - PULMONARY ARTERIAL WEDGE PRESSURE INCREASED [None]
  - PULMONARY EMBOLISM [None]
  - QRS AXIS ABNORMAL [None]
  - RHABDOMYOLYSIS [None]
  - RIGHT VENTRICULAR FAILURE [None]
  - SEROTONIN SYNDROME [None]
  - TRICUSPID VALVE INCOMPETENCE [None]
